FAERS Safety Report 17001247 (Version 3)
Quarter: 2020Q2

REPORT INFORMATION
  Report Type: Report from Study
  Country: None (occurrence: US)
  Receive Date: 20191106
  Receipt Date: 20200520
  Transmission Date: 20200713
  Serious: Yes (Hospitalization)
  Sender: FDA-Public Use
  Company Number: US-ABBVIE-19P-163-2993297-00

PATIENT
  Age: 43 Year
  Sex: Male
  Weight: 70.37 kg

DRUGS (1)
  1. SKYRIZI [Suspect]
     Active Substance: RISANKIZUMAB-RZAA
     Indication: PSORIASIS
     Route: 058
     Dates: start: 201906, end: 201910

REACTIONS (6)
  - Rib fracture [Recovering/Resolving]
  - Road traffic accident [Recovering/Resolving]
  - Lower limb fracture [Recovering/Resolving]
  - Wrist fracture [Recovering/Resolving]
  - Spinal fracture [Recovering/Resolving]
  - Joint dislocation [Recovering/Resolving]

NARRATIVE: CASE EVENT DATE: 20191017
